FAERS Safety Report 5661890-8 (Version None)
Quarter: 2008Q1

REPORT INFORMATION
  Report Type: 
  Country: None (occurrence: None)
  Receive Date: 20080312
  Receipt Date: 20080307
  Transmission Date: 20080703
  Serious: Yes (Other)
  Sender: FDA-Public Use
  Company Number: US-JNJFOC-20080302090

PATIENT
  Sex: Male

DRUGS (4)
  1. CONCERTA [Suspect]
     Indication: ANXIETY
     Route: 048
  2. TESTOSTERONE [Suspect]
     Indication: DRUG USE FOR UNKNOWN INDICATION
  3. PROVIGIL [Suspect]
     Indication: DRUG USE FOR UNKNOWN INDICATION
  4. DIAZEPAM [Suspect]
     Indication: DRUG USE FOR UNKNOWN INDICATION
     Route: 048

REACTIONS (1)
  - HOMICIDE [None]
